FAERS Safety Report 15738362 (Version 10)
Quarter: 2020Q4

REPORT INFORMATION
  Report Type: Spontaneous
  Country: CA (occurrence: CA)
  Receive Date: 20181219
  Receipt Date: 20201225
  Transmission Date: 20210113
  Serious: Yes (Other)
  Sender: FDA-Public Use
  Company Number: CA-CELLTRION INC.-2018CA023419

PATIENT

DRUGS (19)
  1. INFLECTRA [Suspect]
     Active Substance: INFLIXIMAB-DYYB
     Indication: COLITIS ULCERATIVE
     Dosage: 10 MG/KG 0, 2, 6 WEEKS, THEN EVERY 8 WEEKS
     Route: 042
     Dates: start: 20181227
  2. INFLECTRA [Suspect]
     Active Substance: INFLIXIMAB-DYYB
     Dosage: 10 MG/KG, EVERY 6  WEEKS
     Route: 042
     Dates: start: 20190515
  3. PREDNISONE TEVA [Concomitant]
     Active Substance: PREDNISONE
     Dosage: UNK
     Route: 065
  4. MEZAVANT [Concomitant]
     Active Substance: MESALAMINE
     Dosage: UNK
  5. INFLECTRA [Suspect]
     Active Substance: INFLIXIMAB-DYYB
     Dosage: 10 MG/KG, 0, 2, 6 WEEKS, THEN EVERY 8 WEEKS
     Route: 042
     Dates: start: 20190220
  6. IMURAN [Concomitant]
     Active Substance: AZATHIOPRINE
     Dosage: 100 MG, DAILY
     Route: 048
  7. INFLECTRA [Suspect]
     Active Substance: INFLIXIMAB-DYYB
     Indication: CROHN^S DISEASE
     Dosage: 10 MG/KG 0, 2, 6 WEEKS, THEN EVERY 8 WEEKS
     Route: 042
     Dates: start: 20181005, end: 20190220
  8. MYLAN-TENOFOVIR [Concomitant]
     Dosage: UNK
     Route: 048
  9. AZA [AZITHROMYCIN DIHYDRATE] [Concomitant]
     Dosage: 100 MG, 1X/DAY
  10. PREDNISONE. [Concomitant]
     Active Substance: PREDNISONE
     Dosage: UNK
     Route: 065
  11. VENOFER [Concomitant]
     Active Substance: IRON SUCROSE
     Dosage: UNK (IV ONCE A WEEK X 3 WEEKS)
     Route: 042
     Dates: start: 20181012
  12. MEZAVANT [Concomitant]
     Active Substance: MESALAMINE
     Dosage: UNK
     Dates: start: 201805
  13. AZA [AZITHROMYCIN DIHYDRATE] [Concomitant]
     Dosage: 50 MG, UNK
  14. SALOFALK [MESALAZINE] [Concomitant]
     Active Substance: MESALAMINE
     Dosage: UNK
     Dates: start: 201805
  15. MEZAVANT [Concomitant]
     Active Substance: MESALAMINE
     Dosage: 1.2 G, DAILY (2 TABS)
     Route: 048
  16. INFLECTRA [Suspect]
     Active Substance: INFLIXIMAB-DYYB
     Dosage: 10 MG/KG, EVERY 6  WEEKS
     Route: 042
     Dates: start: 20190515
  17. CALCIUM [Concomitant]
     Active Substance: CALCIUM
     Dosage: UNK
     Route: 048
  18. INFLECTRA [Suspect]
     Active Substance: INFLIXIMAB-DYYB
     Dosage: 10 MG/KG, EVERY 6 WEEKS
     Route: 042
     Dates: start: 20190403, end: 20190515
  19. VITAMINE D [Concomitant]
     Active Substance: CHOLECALCIFEROL
     Dosage: 10,000 IU ONCE A WEEK
     Route: 048

REACTIONS (6)
  - Treatment failure [Unknown]
  - Heart rate increased [Unknown]
  - Haematochezia [Not Recovered/Not Resolved]
  - Off label use [Unknown]
  - Abdominal pain [Unknown]
  - Weight increased [Unknown]

NARRATIVE: CASE EVENT DATE: 20190515
